FAERS Safety Report 10797774 (Version 1)
Quarter: 2015Q1

REPORT INFORMATION
  Report Type: Spontaneous
  Country: US (occurrence: US)
  Receive Date: 20150216
  Receipt Date: 20150216
  Transmission Date: 20150721
  Serious: No
  Sender: FDA-Public Use
  Company Number: US-PFIZER INC-2015053348

PATIENT
  Age: 38 Year
  Sex: Female
  Weight: 62 kg

DRUGS (8)
  1. VERAPAMIL HCL [Suspect]
     Active Substance: VERAPAMIL HYDROCHLORIDE
     Indication: MIGRAINE
     Dosage: 100 MG, 1X/DAY
     Dates: start: 201312, end: 201403
  2. PHENOBARBITAL. [Concomitant]
     Active Substance: PHENOBARBITAL
     Indication: EPILEPSY
     Dosage: 48.6 MG, DAILY (AT NIGHT)
     Route: 048
     Dates: start: 19941006
  3. VIMPAT [Concomitant]
     Active Substance: LACOSAMIDE
     Dosage: 50 TABLET, 6 A DAY. INCREASED FROM 100MG TABLETS TO 150 MG TABS 2X/ DAY, 29JAN2015
  4. NORTRIPTYLINE [Concomitant]
     Active Substance: NORTRIPTYLINE
     Indication: MIGRAINE
     Dosage: 10 MG, 2X/DAY
     Dates: start: 201403
  5. LAMICTAL [Concomitant]
     Active Substance: LAMOTRIGINE
     Indication: SEIZURE
     Dosage: 100 MG, 2X/DAY
     Route: 048
  6. FELBATOL [Concomitant]
     Active Substance: FELBAMATE
     Indication: EPILEPSY
     Dosage: 2700 MG, DAILY
     Dates: start: 2006
  7. KEPPRA [Concomitant]
     Active Substance: LEVETIRACETAM
     Indication: SEIZURE
     Dosage: 1200 MG, DAILY
     Route: 048
  8. KLONOPIN [Concomitant]
     Active Substance: CLONAZEPAM
     Indication: ANXIETY
     Dosage: 2 MG, DAILY
     Route: 048

REACTIONS (1)
  - Dizziness [Unknown]

NARRATIVE: CASE EVENT DATE: 201403
